FAERS Safety Report 4274607-9 (Version None)
Quarter: 2004Q1

REPORT INFORMATION
  Report Type: 
  Country: None (occurrence: None)
  Receive Date: 20040115
  Receipt Date: 20040105
  Transmission Date: 20041129
  Serious: Yes (Disabling)
  Sender: FDA-Public Use
  Company Number: 2004GB00009

PATIENT
  Age: 59 Year
  Sex: Male
  Weight: 69.1 kg

DRUGS (7)
  1. OMEPRAZOLE [Suspect]
     Indication: DUODENAL ULCER
     Dosage: 40 MG DAILY PO
     Route: 048
     Dates: start: 20031015, end: 20031025
  2. OMEPRAZOLE [Suspect]
     Indication: DUODENAL ULCER
     Dosage: 40 MG DAILY PO
     Route: 048
     Dates: end: 20031129
  3. METRONIDAZOLE [Concomitant]
  4. OXYTETRACYCLINE [Concomitant]
  5. FRUSEMIDE [Concomitant]
  6. GARLIC [Concomitant]
  7. EVENING PRIMROSE OIL [Concomitant]

REACTIONS (4)
  - EYE REDNESS [None]
  - EYE SWELLING [None]
  - HEADACHE [None]
  - PHOTOPHOBIA [None]
